FAERS Safety Report 14612640 (Version 1)
Quarter: 2018Q1

REPORT INFORMATION
  Report Type: Spontaneous
  Country: US (occurrence: US)
  Receive Date: 20180308
  Receipt Date: 20180308
  Transmission Date: 20180509
  Serious: Yes (Other)
  Sender: FDA-Public Use
  Company Number: US-GLAXOSMITHKLINE-US2018034496

PATIENT
  Age: 61 Year
  Sex: Female

DRUGS (7)
  1. HERPES ZOSTER VACCINE [Concomitant]
     Active Substance: VARICELLA-ZOSTER VIRUS STRAIN OKA/MERCK LIVE ANTIGEN
     Dosage: UNK
     Dates: start: 201709
  2. ASPIRIN (BABY) [Concomitant]
     Active Substance: ASPIRIN
  3. METOPROLOL. [Concomitant]
     Active Substance: METOPROLOL
  4. CRESTOR [Concomitant]
     Active Substance: ROSUVASTATIN CALCIUM
  5. NUCALA [Suspect]
     Active Substance: MEPOLIZUMAB
     Indication: ASTHMA
     Dosage: UNK UNK, CYC
     Route: 042
     Dates: start: 201710, end: 201801
  6. CYMBALTA [Concomitant]
     Active Substance: DULOXETINE HYDROCHLORIDE
  7. VALSARTAN. [Concomitant]
     Active Substance: VALSARTAN

REACTIONS (16)
  - Flank pain [Recovering/Resolving]
  - Blood urine present [Unknown]
  - Eosinophil count decreased [Unknown]
  - Intracranial pressure increased [Recovered/Resolved]
  - Back pain [Recovering/Resolving]
  - Neuralgia [Recovering/Resolving]
  - Sciatica [Recovering/Resolving]
  - Headache [Recovered/Resolved]
  - Pyrexia [Recovered/Resolved]
  - Condition aggravated [Unknown]
  - Dyspnoea exertional [Recovering/Resolving]
  - Rash generalised [Unknown]
  - Pain [Recovering/Resolving]
  - Hyperaesthesia [Recovering/Resolving]
  - Influenza like illness [Unknown]
  - Herpes zoster [Recovered/Resolved]

NARRATIVE: CASE EVENT DATE: 201710
